FAERS Safety Report 16730058 (Version 1)
Quarter: 2019Q3

REPORT INFORMATION
  Report Type: Spontaneous
  Country: GB (occurrence: GB)
  Receive Date: 20190822
  Receipt Date: 20190822
  Transmission Date: 20191005
  Serious: Yes (Other)
  Sender: FDA-Public Use
  Company Number: GB-MYLANLABS-2019M1078031

PATIENT
  Age: 46 Year
  Sex: Male

DRUGS (2)
  1. BUPRENORPHINE. [Suspect]
     Active Substance: BUPRENORPHINE
     Dosage: 16 MILLIGRAM, QD
     Route: 060
     Dates: start: 20180921
  2. BUPRENORPHINE. [Suspect]
     Active Substance: BUPRENORPHINE
     Indication: PRODUCT USED FOR UNKNOWN INDICATION
     Dosage: TABLETS SUPERVISED
     Route: 060
     Dates: start: 20180130

REACTIONS (4)
  - Palpitations [Recovering/Resolving]
  - Panic reaction [Recovering/Resolving]
  - Hyperventilation [Recovering/Resolving]
  - Chest pain [Recovering/Resolving]
